FAERS Safety Report 18554069 (Version 1)
Quarter: 2020Q4

REPORT INFORMATION
  Report Type: Spontaneous
  Country: DE (occurrence: DE)
  Receive Date: 20201127
  Receipt Date: 20201127
  Transmission Date: 20210114
  Serious: Yes (Other)
  Sender: FDA-Public Use
  Company Number: DE-SUN PHARMACEUTICAL INDUSTRIES LTD-2020RR-268025

PATIENT
  Sex: Male

DRUGS (3)
  1. OXALIPLATIN SUN 5 MG/ML KONZENTRAT ZUR HERSTELLUNG EINER [Suspect]
     Active Substance: OXALIPLATIN
     Indication: COLORECTAL CANCER
     Dosage: 219,7 MG/500 ML GLUCOSE 5 % I.V. (DURING 2 HOURS), 1 CYCLE
     Route: 042
  2. GRANISETRON B. BRAUN [Concomitant]
     Active Substance: GRANISETRON HYDROCHLORIDE
     Indication: PRODUCT USED FOR UNKNOWN INDICATION
     Dosage: 3 MILLIGRAM, UNK
     Route: 042
  3. DEXA HEXAL [Concomitant]
     Indication: PRODUCT USED FOR UNKNOWN INDICATION
     Dosage: 8 MILLIGRAM, UNK
     Route: 042

REACTIONS (3)
  - Product quality issue [Unknown]
  - Dyspnoea [Recovered/Resolved]
  - Stridor [Recovered/Resolved]

NARRATIVE: CASE EVENT DATE: 20200827
